FAERS Safety Report 7865327-X (Version None)
Quarter: 2011Q4

REPORT INFORMATION
  Report Type: 
  Country: None (occurrence: None)
  Receive Date: 20111028
  Receipt Date: 20101123
  Transmission Date: 20120403
  Serious: No
  Sender: FDA-Public Use
  Company Number: US-GLAXOSMITHKLINE-A0894697A

PATIENT
  Age: 64 Year
  Sex: Female

DRUGS (2)
  1. ADVAIR DISKUS 100/50 [Suspect]
     Indication: ALPHA-1 ANTI-TRYPSIN DEFICIENCY
     Dosage: 1PUFF TWICE PER DAY
     Route: 055
     Dates: start: 20090331
  2. NO CONCURRENT MEDICATION [Concomitant]

REACTIONS (3)
  - CHEST DISCOMFORT [None]
  - PRODUCT QUALITY ISSUE [None]
  - OXYGEN SATURATION DECREASED [None]
